APPROVED DRUG PRODUCT: PREGABALIN
Active Ingredient: PREGABALIN
Strength: 50MG
Dosage Form/Route: CAPSULE;ORAL
Application: A205924 | Product #002
Applicant: MACLEODS PHARMACEUTICALS LTD
Approved: Nov 12, 2024 | RLD: No | RS: No | Type: DISCN